FAERS Safety Report 23306772 (Version 1)
Quarter: 2023Q4

REPORT INFORMATION
  Report Type: Spontaneous
  Country: JP (occurrence: JP)
  Receive Date: 20231218
  Receipt Date: 20231218
  Transmission Date: 20240110
  Serious: Yes (Other)
  Sender: FDA-Public Use
  Company Number: JP-GLAXOSMITHKLINE-JP2023JPN173474

PATIENT

DRUGS (2)
  1. BENLYSTA [Suspect]
     Active Substance: BELIMUMAB
     Indication: Gene mutation
     Dosage: UNK
  2. BENLYSTA [Suspect]
     Active Substance: BELIMUMAB
     Indication: Aicardi-Goutieres syndrome

REACTIONS (4)
  - Chronic cutaneous lupus erythematosus [Unknown]
  - Erythema [Unknown]
  - Pernio-like erythema [Unknown]
  - Product use in unapproved indication [Unknown]
